FAERS Safety Report 8825981 (Version 2)
Quarter: 2015Q2

REPORT INFORMATION
  Report Type: Report from Study
  Country: US (occurrence: US)
  Receive Date: 20121005
  Receipt Date: 20150420
  Transmission Date: 20150821
  Serious: Yes (Death, Other)
  Sender: FDA-Public Use
  Company Number: US-ROCHE-1132048

PATIENT
  Sex: Male

DRUGS (28)
  1. COUMADIN [Concomitant]
     Active Substance: WARFARIN SODIUM
  2. KYTRIL [Concomitant]
     Active Substance: GRANISETRON HYDROCHLORIDE
     Route: 065
  3. NOVANTRONE [Concomitant]
     Active Substance: MITOXANTRONE HYDROCHLORIDE
  4. FUROSEMIDE. [Concomitant]
     Active Substance: FUROSEMIDE
  5. ANZEMET [Concomitant]
     Active Substance: DOLASETRON MESYLATE
  6. ATIVAN [Concomitant]
     Active Substance: LORAZEPAM
  7. CISPLATIN. [Concomitant]
     Active Substance: CISPLATIN
  8. SOLU-MEDROL [Concomitant]
     Active Substance: METHYLPREDNISOLONE SODIUM SUCCINATE
  9. GEMZAR [Concomitant]
     Active Substance: GEMCITABINE HYDROCHLORIDE
     Route: 065
     Dates: start: 20021003
  10. LASIX [Concomitant]
     Active Substance: FUROSEMIDE
  11. ETOPOSIDE. [Concomitant]
     Active Substance: ETOPOSIDE
  12. NEXIUM [Concomitant]
     Active Substance: ESOMEPRAZOLE MAGNESIUM
  13. DOXIL [Concomitant]
     Active Substance: DOXORUBICIN HYDROCHLORIDE
     Route: 065
     Dates: start: 20021003
  14. FLUDARA [Concomitant]
     Active Substance: FLUDARABINE PHOSPHATE
     Route: 065
     Dates: start: 20021003
  15. ZOFRAN [Concomitant]
     Active Substance: ONDANSETRON HYDROCHLORIDE
  16. TYLENOL [Concomitant]
     Active Substance: ACETAMINOPHEN
     Route: 048
  17. BENADRYL [Concomitant]
     Active Substance: DIPHENHYDRAMINE HYDROCHLORIDE
  18. IFEX [Concomitant]
     Active Substance: IFOSFAMIDE
  19. POTASSIUM CHLORIDE. [Concomitant]
     Active Substance: POTASSIUM CHLORIDE
  20. MANNITOL. [Concomitant]
     Active Substance: MANNITOL
  21. RITUXAN [Suspect]
     Active Substance: RITUXIMAB
     Indication: NON-HODGKIN^S LYMPHOMA
     Route: 065
  22. DECADRON [Concomitant]
     Active Substance: DEXAMETHASONE
  23. ARA-C [Concomitant]
     Active Substance: CYTARABINE
  24. LESCOL [Concomitant]
     Active Substance: FLUVASTATIN SODIUM
  25. MESNA. [Concomitant]
     Active Substance: MESNA
  26. K-DUR [Concomitant]
     Active Substance: POTASSIUM CHLORIDE
  27. PROCRIT [Concomitant]
     Active Substance: ERYTHROPOIETIN
  28. NAVELBINE [Concomitant]
     Active Substance: VINORELBINE TARTRATE
     Route: 065
     Dates: start: 20021003

REACTIONS (22)
  - Dyspnoea [Unknown]
  - Lymphadenopathy [Unknown]
  - Death [Fatal]
  - Local swelling [Unknown]
  - Cough [Unknown]
  - Scrotal oedema [Unknown]
  - Lymph node pain [Unknown]
  - Non-Hodgkin^s lymphoma recurrent [Unknown]
  - Dyspnoea exertional [Unknown]
  - Abdominal discomfort [Unknown]
  - Pain in extremity [Unknown]
  - Pancytopenia [Unknown]
  - Fatigue [Unknown]
  - Malaise [Unknown]
  - Asthenia [Unknown]
  - Oedema peripheral [Unknown]
  - Disease progression [Unknown]
  - Peripheral swelling [Unknown]
  - Abdominal rigidity [Unknown]
  - Back pain [Unknown]
  - Therapeutic response decreased [Unknown]
  - Decreased appetite [Unknown]
